FAERS Safety Report 21232112 (Version 2)
Quarter: 2022Q4

REPORT INFORMATION
  Report Type: Other
  Country: JP (occurrence: JP)
  Receive Date: 20220819
  Receipt Date: 20221026
  Transmission Date: 20230113
  Serious: Yes (Death, Other)
  Sender: FDA-Public Use
  Company Number: JP-CHUGAI-2022031850

PATIENT
  Age: 80 Year
  Sex: Female

DRUGS (1)
  1. XELODA [Suspect]
     Active Substance: CAPECITABINE
     Indication: Colon cancer
     Route: 048

REACTIONS (2)
  - Shock [Fatal]
  - Dihydropyrimidine dehydrogenase deficiency [Unknown]
